FAERS Safety Report 10485123 (Version 1)
Quarter: 2014Q3

REPORT INFORMATION
  Report Type: Report from Study
  Country: CZ (occurrence: CZ)
  Receive Date: 20140930
  Receipt Date: 20140930
  Transmission Date: 20150326
  Serious: Yes (Hospitalization, Other)
  Sender: FDA-Public Use
  Company Number: CZ-ASTRAZENECA-2014SE71559

PATIENT
  Age: 26603 Day
  Sex: Female

DRUGS (9)
  1. SIOFOR [Concomitant]
     Active Substance: METFORMIN HYDROCHLORIDE
  2. AZD6140 [Suspect]
     Active Substance: TICAGRELOR
     Indication: CARDIOVASCULAR EVENT PROPHYLAXIS
     Dosage: 180 MG (TWO TABLETS) LOADING DOSE ON DAY 1 FOLLOWED BY 90 MG TWICE DAILY OR CORRESPONDING PLACEBO GI
     Route: 048
     Dates: start: 20140529, end: 20140625
  3. ENYGLID [Concomitant]
     Dates: end: 20140625
  4. JANUMET [Concomitant]
     Active Substance: METFORMIN HYDROCHLORIDE\SITAGLIPTIN PHOSPHATE
  5. AMLODIPINE [Concomitant]
     Active Substance: AMLODIPINE BESYLATE
  6. INEGY [Concomitant]
     Active Substance: EZETIMIBE\SIMVASTATIN
     Dates: end: 20140625
  7. DETRALEX [Concomitant]
     Active Substance: DIOSMIN\HESPERIDIN
     Dates: end: 20140625
  8. PRESTARIUM  NEO COMBI [Concomitant]
     Active Substance: INDAPAMIDE\PERINDOPRIL ARGININE
  9. SORBIFER [Concomitant]
     Active Substance: FERROUS SULFATE\FERROUS SULFATE, DRIED

REACTIONS (1)
  - Transient ischaemic attack [Recovered/Resolved]

NARRATIVE: CASE EVENT DATE: 20140625
